FAERS Safety Report 9735233 (Version 1)
Quarter: 2013Q4

REPORT INFORMATION
  Report Type: Spontaneous
  Country: US (occurrence: US)
  Receive Date: 20131206
  Receipt Date: 20131206
  Transmission Date: 20140711
  Serious: Yes (Hospitalization)
  Sender: FDA-Public Use
  Company Number: US-B.I. PHARMACEUTICALS,INC./RIDGEFIELD-2013-BI-40487GD

PATIENT
  Age: 74 Year
  Sex: Male
  Weight: 71 kg

DRUGS (3)
  1. DABIGATRAN [Suspect]
     Indication: ATRIAL FIBRILLATION
     Dosage: 300 MG
  2. DEXLANSOPRAZOLE [Suspect]
  3. AMIODARONE [Concomitant]
     Indication: ATRIAL FIBRILLATION

REACTIONS (3)
  - Atrial fibrillation [Recovered/Resolved]
  - Ischaemic stroke [Unknown]
  - Cerebral infarction [Unknown]
